FAERS Safety Report 6534318-3 (Version None)
Quarter: 2010Q1

REPORT INFORMATION
  Report Type: 
  Country: None (occurrence: None)
  Receive Date: 20100112
  Receipt Date: 20091217
  Transmission Date: 20100710
  Serious: No
  Sender: FDA-Public Use
  Company Number: FR-BAYER-200942910GPV

PATIENT
  Age: 33 Year
  Sex: Female

DRUGS (1)
  1. YAZ [Suspect]
     Indication: DRUG USE FOR UNKNOWN INDICATION
     Route: 048
     Dates: start: 20090401

REACTIONS (4)
  - ACNE [None]
  - LIBIDO DISORDER [None]
  - MUSCLE SPASMS [None]
  - NERVOUS SYSTEM DISORDER [None]
